FAERS Safety Report 9063422 (Version 1)
Quarter: 2013Q1

REPORT INFORMATION
  Report Type: Report from Study
  Country: US (occurrence: US)
  Receive Date: 20130131
  Receipt Date: 20130131
  Transmission Date: 20140127
  Serious: Yes (Other)
  Sender: FDA-Public Use
  Company Number: US-ABBOTT-12P-163-1013270-00

PATIENT
  Age: 57 Year
  Sex: Female

DRUGS (14)
  1. HUMIRA PEN [Suspect]
     Indication: PSORIASIS
     Dates: start: 20120719
  2. ATENOLOL [Concomitant]
     Indication: BLOOD PRESSURE ABNORMAL
     Dosage: 50 MG DAILY
  3. COZAAR [Concomitant]
     Indication: BLOOD PRESSURE ABNORMAL
     Dosage: 50 MG DAILY
  4. NEXIUM [Concomitant]
     Indication: GASTROOESOPHAGEAL REFLUX DISEASE
     Dosage: 40 MG DAILY
  5. ZANTAC [Concomitant]
     Indication: GASTROOESOPHAGEAL REFLUX DISEASE
  6. ATORVASTATIN [Concomitant]
     Indication: BLOOD PRESSURE ABNORMAL
     Dosage: 20 MG DAILY
  7. LEXAPRO [Concomitant]
     Indication: DEPRESSION
     Dosage: 20 MG DAILY
  8. WELLBUTRIN [Concomitant]
     Indication: DEPRESSION
     Dosage: 300 MG DAILY
  9. SEROQUEL [Concomitant]
     Indication: DEPRESSION
     Dosage: 2 TABLETS AT HOUR OF SLEEP
  10. METFORMIN [Concomitant]
     Indication: DIABETES MELLITUS
     Dosage: 3 TABS DAILY
  11. JANUVIA [Concomitant]
     Indication: DIABETES MELLITUS
     Dosage: 100 MG DAILY
  12. GLIPIZIDE [Concomitant]
     Indication: DIABETES MELLITUS
  13. HYDROCODONE/ACETAMINOPHEN [Concomitant]
     Indication: PAIN
     Dosage: (5/325 MG) EVERY 4-6 HOURS AS NEEDED
  14. VITAMIN D NOS [Concomitant]
     Indication: PRODUCT USED FOR UNKNOWN INDICATION

REACTIONS (2)
  - Knee operation [Not Recovered/Not Resolved]
  - Inappropriate schedule of drug administration [Unknown]
